FAERS Safety Report 5954591-X (Version None)
Quarter: 2008Q4

REPORT INFORMATION
  Report Type: 
  Country: None (occurrence: None)
  Receive Date: 20081112
  Receipt Date: 20081103
  Transmission Date: 20090506
  Serious: Yes (Other)
  Sender: FDA-Public Use
  Company Number: CERZ-1000395

PATIENT
  Sex: Male

DRUGS (1)
  1. CEREZYME [Suspect]
     Indication: GAUCHER'S DISEASE
     Dosage: INTRAVENOUS
     Route: 042

REACTIONS (4)
  - ANGIOSARCOMA [None]
  - BLEEDING TIME ABNORMAL [None]
  - FEMUR FRACTURE [None]
  - PATHOLOGICAL FRACTURE [None]
